FAERS Safety Report 7590123-0 (Version None)
Quarter: 2011Q3

REPORT INFORMATION
  Report Type: 
  Country: None (occurrence: None)
  Receive Date: 20110705
  Receipt Date: 20110701
  Transmission Date: 20111222
  Serious: Yes (Other)
  Sender: FDA-Public Use
  Company Number: B0730185A

PATIENT
  Sex: Female

DRUGS (3)
  1. PAROXETINE HCL [Suspect]
     Dosage: 20MG PER DAY
     Route: 048
     Dates: start: 20090101
  2. REMICADE [Suspect]
     Indication: CROHN'S DISEASE
     Route: 042
     Dates: start: 20080215, end: 20110114
  3. PRAZEPAM [Suspect]
     Dosage: 1UNIT PER DAY
     Route: 048
     Dates: start: 20090101

REACTIONS (6)
  - CHILLS [None]
  - VERTIGO [None]
  - PYREXIA [None]
  - BREAST DISCHARGE [None]
  - MASTITIS [None]
  - BREAST INFLAMMATION [None]
